FAERS Safety Report 4721500-0 (Version None)
Quarter: 2005Q3

REPORT INFORMATION
  Report Type: 
  Country: None (occurrence: None)
  Receive Date: 20050721
  Receipt Date: 20041020
  Transmission Date: 20060218
  Serious: No
  Sender: FDA-Public Use
  Company Number: US-BRISTOL-MYERS SQUIBB COMPANY-12738597

PATIENT
  Age: 82 Year
  Sex: Male
  Weight: 76 kg

DRUGS (5)
  1. COUMADIN [Suspect]
     Indication: CARDIAC FLUTTER
     Route: 048
     Dates: start: 20040901
  2. HYTRIN [Concomitant]
  3. LISINOPRIL [Concomitant]
  4. ATENOLOL [Concomitant]
  5. HYDROCHLOROTHIAZIDE [Concomitant]

REACTIONS (2)
  - INTERNATIONAL NORMALISED RATIO FLUCTUATION [None]
  - WEIGHT INCREASED [None]
